FAERS Safety Report 18501335 (Version 3)
Quarter: 2021Q1

REPORT INFORMATION
  Report Type: Spontaneous
  Country: GR (occurrence: GR)
  Receive Date: 20201113
  Receipt Date: 20210225
  Transmission Date: 20210419
  Serious: Yes (Death, Hospitalization, Other)
  Sender: FDA-Public Use
  Company Number: GR-PFIZER INC-2020443003

PATIENT
  Age: 67 Year
  Sex: Male

DRUGS (14)
  1. FUROSEMIDE. [Suspect]
     Active Substance: FUROSEMIDE
     Dosage: UNK,DOSE X 2.5
     Route: 041
  2. MAGNESIUM [Suspect]
     Active Substance: MAGNESIUM
     Dosage: UNK
  3. IVABRADINE [Suspect]
     Active Substance: IVABRADINE
     Dosage: UNK
  4. FUROSEMIDE. [Suspect]
     Active Substance: FUROSEMIDE
     Indication: CARDIAC FAILURE
     Dosage: 500 MG
  5. CARVEDILOL. [Suspect]
     Active Substance: CARVEDILOL
     Indication: CARDIAC FAILURE
     Dosage: 6.25 MG, 2X/DAY
  6. LEVOSIMENDAN [Suspect]
     Active Substance: LEVOSIMENDAN
     Dosage: UNK
  7. ALPRENOLOL [Concomitant]
     Active Substance: ALPRENOLOL
     Dosage: 25 MG, QH
  8. ASPIRIN [ACETYLSALICYLIC ACID] [Suspect]
     Active Substance: ASPIRIN
     Indication: CARDIAC FAILURE
     Dosage: UNK
  9. SPIRONOLACTONE. [Suspect]
     Active Substance: SPIRONOLACTONE
     Dosage: 200 MG/H
  10. EPLERENONE. [Suspect]
     Active Substance: EPLERENONE
     Indication: CARDIAC FAILURE
     Dosage: 25 MG
  11. RAMIPRIL. [Suspect]
     Active Substance: RAMIPRIL
     Dosage: 2.5 MG
  12. BUMETANIDE. [Suspect]
     Active Substance: BUMETANIDE
     Dosage: UNK,1X2
  13. AMIODARONE HYDROCHLORIDE. [Suspect]
     Active Substance: AMIODARONE HYDROCHLORIDE
     Indication: CARDIAC FAILURE
     Dosage: UNK
  14. METOLAZONE. [Suspect]
     Active Substance: METOLAZONE
     Dosage: UNK,2 DAYS

REACTIONS (10)
  - Hypokalaemia [Unknown]
  - Hypotension [Unknown]
  - Hyperaldosteronism [Unknown]
  - Generalised oedema [Unknown]
  - Drug ineffective [Unknown]
  - Cardiac failure [Fatal]
  - Pulmonary oedema [Unknown]
  - Device infusion issue [Fatal]
  - Ejection fraction decreased [Unknown]
  - Hypomagnesaemia [Unknown]
